FAERS Safety Report 6816235-4 (Version None)
Quarter: 2010Q3

REPORT INFORMATION
  Report Type: 
  Country: None (occurrence: None)
  Receive Date: 20100702
  Receipt Date: 20100702
  Transmission Date: 20110219
  Serious: No
  Sender: FDA-Public Use
  Company Number: None

PATIENT
  Sex: Male
  Weight: 15.2 kg

DRUGS (6)
  1. CYTARABINE [Suspect]
     Dosage: 384 MG
     Dates: end: 20100610
  2. DEXAMETHASONE [Suspect]
     Dosage: 84 MG
     Dates: end: 20100523
  3. DOXORUBICIN HYDROCHLORIDE [Suspect]
     Dosage: 48 MG
  4. METHOTREXATE [Suspect]
     Dosage: 36 MG
     Dates: end: 20100614
  5. PEG-L ASPARAGINASE (PEGASPARGASE, ONCOSPAR) [Suspect]
     Dosage: 1600 UNIT
     Dates: end: 20100506
  6. VINCRISTINE SULFATE [Suspect]
     Dosage: 1.6 MG
     Dates: end: 20100517

REACTIONS (1)
  - BLOOD GLUCOSE INCREASED [None]
